FAERS Safety Report 5519769-8 (Version None)
Quarter: 2007Q4

REPORT INFORMATION
  Report Type: 
  Country: None (occurrence: None)
  Receive Date: 20071116
  Receipt Date: 20070809
  Transmission Date: 20080405
  Serious: No
  Sender: FDA-Public Use
  Company Number: A0669225A

PATIENT
  Sex: Male

DRUGS (2)
  1. COREG CR [Suspect]
     Dosage: 80MG PER DAY
     Route: 048
  2. ANTIBIOTIC [Concomitant]

REACTIONS (2)
  - INCREASED UPPER AIRWAY SECRETION [None]
  - UPPER RESPIRATORY TRACT INFECTION [None]
